FAERS Safety Report 6401455-3 (Version None)
Quarter: 2009Q4

REPORT INFORMATION
  Report Type: 
  Country: None (occurrence: None)
  Receive Date: 20091015
  Receipt Date: 20091001
  Transmission Date: 20100525
  Serious: Yes (Hospitalization)
  Sender: FDA-Public Use
  Company Number: JP-BAYER-200913436BYL

PATIENT
  Age: 72 Year
  Sex: Male

DRUGS (7)
  1. MAGNEVIST [Suspect]
     Indication: HEPATIC NEOPLASM MALIGNANT
     Route: 065
     Dates: start: 20020301, end: 20020301
  2. MAGNEVIST [Suspect]
     Route: 065
     Dates: start: 20070401, end: 20070401
  3. OMNISCAN [Suspect]
     Indication: NUCLEAR MAGNETIC RESONANCE IMAGING
     Route: 065
     Dates: start: 20050801, end: 20050801
  4. PROHANCE [Suspect]
     Indication: NUCLEAR MAGNETIC RESONANCE IMAGING
     Route: 065
     Dates: start: 20061001, end: 20061001
  5. PROHANCE [Suspect]
     Route: 065
     Dates: start: 20060301, end: 20060301
  6. PROHANCE [Suspect]
     Route: 065
     Dates: start: 20071201, end: 20071201
  7. RESOVIST INJ. [Concomitant]
     Indication: NUCLEAR MAGNETIC RESONANCE IMAGING
     Route: 065

REACTIONS (1)
  - NEPHROGENIC SYSTEMIC FIBROSIS [None]
